FAERS Safety Report 6793321-9 (Version None)
Quarter: 2010Q2

REPORT INFORMATION
  Report Type: 
  Country: None (occurrence: None)
  Receive Date: 20100624
  Receipt Date: 20100310
  Transmission Date: 20101027
  Serious: Yes (Life-Threatening, Other)
  Sender: FDA-Public Use
  Company Number: US-MYLANLABS-2009S1020352

PATIENT
  Age: 14 Year
  Sex: Female
  Weight: 64.64 kg

DRUGS (12)
  1. CLOZAPINE [Suspect]
     Indication: AGGRESSION
     Route: 048
     Dates: start: 20091111, end: 20091117
  2. CLOZAPINE [Suspect]
     Route: 048
     Dates: start: 20091118, end: 20091118
  3. BENEFIBER /01648102/ [Concomitant]
     Route: 048
  4. DESMOPRESSIN ACETATE [Concomitant]
     Route: 048
  5. DEPAKOTE ER [Concomitant]
     Route: 048
  6. NEXIUM [Concomitant]
     Route: 048
  7. CONTRACEPTIVES NOS [Concomitant]
     Route: 030
  8. NAMENDA [Concomitant]
     Route: 048
  9. OXCARBAZEPINE [Concomitant]
     Route: 048
  10. SEROQUEL [Concomitant]
     Dosage: TAPERED TO 200MG PO QHS ON 11/18/2009
     Route: 048
  11. DESYREL [Concomitant]
     Route: 048
  12. GEODON [Concomitant]
     Dosage: TAPERED TO 20MG PO BID ON 11/18/2009
     Route: 048

REACTIONS (3)
  - AGRANULOCYTOSIS [None]
  - GRANULOCYTOPENIA [None]
  - LEUKOPENIA [None]
